FAERS Safety Report 18308019 (Version 1)
Quarter: 2020Q3

REPORT INFORMATION
  Report Type: Spontaneous
  Country: TR (occurrence: TR)
  Receive Date: 20200924
  Receipt Date: 20200924
  Transmission Date: 20201103
  Serious: Yes (Hospitalization)
  Sender: FDA-Public Use
  Company Number: TR-ABBVIE-20K-161-3576045-00

PATIENT
  Age: 27 Year
  Sex: Male

DRUGS (1)
  1. VALPROIC ACID. [Suspect]
     Active Substance: VALPROIC ACID
     Indication: BIPOLAR DISORDER
     Route: 065

REACTIONS (5)
  - Suicide attempt [Unknown]
  - Pancytopenia [Unknown]
  - Loss of consciousness [Unknown]
  - Acute respiratory distress syndrome [Unknown]
  - Intentional overdose [Unknown]
